FAERS Safety Report 17858267 (Version 2)
Quarter: 2020Q2

REPORT INFORMATION
  Report Type: Report from Study
  Country: None (occurrence: US)
  Receive Date: 20200604
  Receipt Date: 20200605
  Transmission Date: 20200714
  Serious: No
  Sender: FDA-Public Use
  Company Number: US-US WORLDMEDS, LLC-USW201905-000982

PATIENT
  Age: 55 Year
  Sex: Female

DRUGS (4)
  1. APOKYN [Suspect]
     Active Substance: APOMORPHINE HYDROCHLORIDE
     Indication: PARKINSON^S DISEASE
     Route: 058
     Dates: start: 201707
  2. CARBIDOPA/LEVODOPA [Concomitant]
     Active Substance: CARBIDOPA\LEVODOPA
  3. RASAGILINE. [Concomitant]
     Active Substance: RASAGILINE
  4. PRAMIPEXOLE. [Concomitant]
     Active Substance: PRAMIPEXOLE

REACTIONS (7)
  - Swelling [Unknown]
  - Weight increased [Unknown]
  - Middle insomnia [Unknown]
  - Expired product administered [Unknown]
  - Fall [Unknown]
  - Ligament sprain [Unknown]
  - Sleep-related eating disorder [Unknown]

NARRATIVE: CASE EVENT DATE: 20190501
